FAERS Safety Report 5979896-8 (Version None)
Quarter: 2008Q4

REPORT INFORMATION
  Report Type: 
  Country: None (occurrence: None)
  Receive Date: 20081205
  Receipt Date: 20081124
  Transmission Date: 20090506
  Serious: Yes (Hospitalization)
  Sender: FDA-Public Use
  Company Number: US-WYE-H06953208

PATIENT
  Age: 73 Year
  Sex: Female

DRUGS (1)
  1. TORISEL [Suspect]
     Indication: NEOPLASM MALIGNANT
     Route: 042
     Dates: start: 20080731, end: 20081022

REACTIONS (7)
  - BLOOD POTASSIUM DECREASED [None]
  - BLOOD PRESSURE INCREASED [None]
  - COUGH [None]
  - DEHYDRATION [None]
  - HEART RATE INCREASED [None]
  - LUNG INFILTRATION [None]
  - PYREXIA [None]
